FAERS Safety Report 14726863 (Version 1)
Quarter: 2018Q2

REPORT INFORMATION
  Report Type: Spontaneous
  Country: GB (occurrence: GB)
  Receive Date: 20180406
  Receipt Date: 20180406
  Transmission Date: 20180711
  Serious: Yes (Hospitalization)
  Sender: FDA-Public Use
  Company Number: GB-TORRENT-00016381

PATIENT
  Age: 79 Year
  Sex: Male
  Weight: 70 kg

DRUGS (6)
  1. TAMSULOSIN HYDROCHLORIDE. [Concomitant]
     Active Substance: TAMSULOSIN HYDROCHLORIDE
     Indication: PRODUCT USED FOR UNKNOWN INDICATION
     Dosage: UNKNOWN
  2. GAVISCON ADVANCE [Concomitant]
     Active Substance: POTASSIUM BICARBONATE\SODIUM ALGINATE
     Indication: PRODUCT USED FOR UNKNOWN INDICATION
     Dosage: UNKNOWN
  3. CETIRIZINE [Concomitant]
     Active Substance: CETIRIZINE HYDROCHLORIDE
     Indication: PRODUCT USED FOR UNKNOWN INDICATION
     Dosage: UNKNOWN
  4. RISPERIDONE. [Suspect]
     Active Substance: RISPERIDONE
     Indication: MAJOR DEPRESSION
     Dosage: UNKNOWN
     Route: 048
     Dates: start: 20171227, end: 20180212
  5. RANITIDINE. [Concomitant]
     Active Substance: RANITIDINE
     Indication: PRODUCT USED FOR UNKNOWN INDICATION
     Dosage: UNKNOWN
  6. DULOXETINE. [Suspect]
     Active Substance: DULOXETINE
     Indication: MAJOR DEPRESSION
     Dosage: UNKNOWN
     Route: 048
     Dates: start: 20171229, end: 20180212

REACTIONS (3)
  - Jaundice [Unknown]
  - Pruritus [Unknown]
  - Drug-induced liver injury [Recovering/Resolving]

NARRATIVE: CASE EVENT DATE: 20180210
